FAERS Safety Report 9038704 (Version 1)
Quarter: 2013Q1

REPORT INFORMATION
  Report Type: Spontaneous
  Country: US (occurrence: None)
  Receive Date: 20130123
  Receipt Date: 20130123
  Transmission Date: 20140127
  Serious: Yes (Life-Threatening, Other)
  Sender: FDA-Public Use
  Company Number: None

PATIENT
  Age: 52 Year
  Sex: Female
  Weight: 90.72 kg

DRUGS (3)
  1. OPCON-A [Suspect]
     Indication: HORDEOLUM
     Route: 047
     Dates: start: 20121027, end: 20121031
  2. OPCON-A [Suspect]
     Indication: CHALAZION
     Route: 047
     Dates: start: 20121027, end: 20121031
  3. OPCON-A [Suspect]
     Indication: PRURITUS
     Route: 047
     Dates: start: 20121027, end: 20121031

REACTIONS (16)
  - Migraine [None]
  - Eye pain [None]
  - Vertigo [None]
  - Chest pain [None]
  - Photosensitivity reaction [None]
  - Dysarthria [None]
  - Tremor [None]
  - Nausea [None]
  - Neck pain [None]
  - Vomiting [None]
  - Nystagmus [None]
  - Balance disorder [None]
  - Cognitive disorder [None]
  - Disturbance in attention [None]
  - Blood pressure increased [None]
  - Aphasia [None]
